FAERS Safety Report 9332554 (Version 1)
Quarter: 2013Q2

REPORT INFORMATION
  Report Type: Spontaneous
  Country: JP (occurrence: None)
  Receive Date: 20130603
  Receipt Date: 20130603
  Transmission Date: 20140414
  Serious: Yes (Other)
  Sender: FDA-Public Use
  Company Number: 2013P1006385

PATIENT
  Age: 70 Year
  Sex: Male

DRUGS (2)
  1. LITHIUM [Suspect]
     Indication: BIPOLAR DISORDER
  2. LEVOTHYROXINE [Suspect]

REACTIONS (14)
  - Hypothyroidism [None]
  - Cardiac tamponade [None]
  - Toxicity to various agents [None]
  - Pericardial effusion [None]
  - Pleural effusion [None]
  - Autoimmune thyroiditis [None]
  - Blood pressure diastolic decreased [None]
  - Face oedema [None]
  - Oedema [None]
  - Oedema peripheral [None]
  - Normochromic normocytic anaemia [None]
  - Blood albumin decreased [None]
  - Blood creatine phosphokinase increased [None]
  - Cardiomegaly [None]
